FAERS Safety Report 12551311 (Version 1)
Quarter: 2016Q3

REPORT INFORMATION
  Report Type: Spontaneous
  Country: US (occurrence: US)
  Receive Date: 20160713
  Receipt Date: 20160713
  Transmission Date: 20161109
  Serious: No
  Sender: FDA-Public Use
  Company Number: US-TEVA-655858USA

PATIENT
  Age: 60 Year
  Sex: Female

DRUGS (1)
  1. ZECUITY [Suspect]
     Active Substance: SUMATRIPTAN SUCCINATE
     Indication: HEADACHE
     Route: 062
     Dates: start: 20160423

REACTIONS (6)
  - Application site paraesthesia [Recovered/Resolved]
  - Drug effect incomplete [Recovered/Resolved]
  - Application site discolouration [Not Recovered/Not Resolved]
  - Application site erythema [Unknown]
  - Application site irritation [Unknown]
  - Therapeutic response unexpected [Recovered/Resolved]

NARRATIVE: CASE EVENT DATE: 20160423
